FAERS Safety Report 7967243-1 (Version None)
Quarter: 2011Q4

REPORT INFORMATION
  Report Type: 
  Country: None (occurrence: None)
  Receive Date: 20111209
  Receipt Date: 20111201
  Transmission Date: 20120403
  Serious: Yes (Other)
  Sender: FDA-Public Use
  Company Number: BR-BRISTOL-MYERS SQUIBB COMPANY-16268898

PATIENT
  Age: 84 Year
  Sex: Female

DRUGS (2)
  1. IRBESARTAN [Suspect]
     Dosage: RECEIVED A LONG TIME AGO
  2. ACTONEL [Concomitant]
     Dosage: RECEIVED A LONG TIME AGO

REACTIONS (4)
  - FRACTURED COCCYX [None]
  - FALL [None]
  - RENAL FAILURE [None]
  - WHEELCHAIR USER [None]
